FAERS Safety Report 17065770 (Version 2)
Quarter: 2022Q3

REPORT INFORMATION
  Report Type: Spontaneous
  Country: IT (occurrence: IT)
  Receive Date: 20191122
  Receipt Date: 20220721
  Transmission Date: 20221027
  Serious: Yes (Death, Other)
  Sender: FDA-Public Use
  Company Number: IT-002147023-PHHY2012IT111323

PATIENT
  Age: 66 Year
  Sex: Female

DRUGS (4)
  1. IMATINIB [Suspect]
     Active Substance: IMATINIB
     Indication: Acute lymphocytic leukaemia
     Dosage: 800 MILLIGRAM, QD (800 MG, QD)
     Route: 048
  2. DASATINIB [Suspect]
     Active Substance: DASATINIB
     Indication: Acute lymphocytic leukaemia
     Dosage: 70 MILLIGRAM, QD (70 MG, QD)
     Route: 065
     Dates: start: 200711
  3. DASATINIB [Suspect]
     Active Substance: DASATINIB
     Dosage: 140 MILLIGRAM, QD (140 MG, QD)
     Route: 065
  4. DASATINIB [Suspect]
     Active Substance: DASATINIB
     Dosage: 100 MILLIGRAM, QD (100 MG, QD)
     Route: 065
     Dates: start: 200703

REACTIONS (5)
  - Cardiotoxicity [Fatal]
  - Cardiac failure [Fatal]
  - Acute lymphocytic leukaemia [Unknown]
  - Malignant neoplasm progression [Unknown]
  - Drug ineffective [Unknown]

NARRATIVE: CASE EVENT DATE: 20100801
